FAERS Safety Report 7595838-6 (Version None)
Quarter: 2011Q3

REPORT INFORMATION
  Report Type: 
  Country: None (occurrence: None)
  Receive Date: 20110707
  Receipt Date: 20110705
  Transmission Date: 20111222
  Serious: No
  Sender: FDA-Public Use
  Company Number: US-PFIZER INC-2011151592

PATIENT
  Sex: Female
  Weight: 58.5 kg

DRUGS (3)
  1. XANAX [Suspect]
     Dosage: 0.25 MG, 2X/DAY
     Route: 048
     Dates: start: 20040101
  2. SYNTHROID [Concomitant]
     Indication: THYROID DISORDER
     Dosage: DAILY
     Route: 048
  3. XANAX [Suspect]
     Indication: PANIC ATTACK
     Dosage: UNK
     Route: 048

REACTIONS (1)
  - DRUG INEFFECTIVE [None]
